FAERS Safety Report 7819826-7 (Version None)
Quarter: 2011Q4

REPORT INFORMATION
  Report Type: 
  Country: None (occurrence: None)
  Receive Date: 20111018
  Receipt Date: 20101207
  Transmission Date: 20120403
  Serious: No
  Sender: FDA-Public Use
  Company Number: US-ASTRAZENECA-2010SE58021

PATIENT
  Sex: Female

DRUGS (1)
  1. SYMBICORT [Suspect]
     Indication: DYSPNOEA
     Dosage: 160/4.5 UG DAILY
     Route: 055
     Dates: start: 20080101

REACTIONS (2)
  - PRODUCT CONTAMINATION PHYSICAL [None]
  - DRUG DOSE OMISSION [None]
